FAERS Safety Report 7027811-0 (Version None)
Quarter: 2010Q4

REPORT INFORMATION
  Report Type: 
  Country: None (occurrence: None)
  Receive Date: 20101005
  Receipt Date: 20100923
  Transmission Date: 20110411
  Serious: Yes (Death)
  Sender: FDA-Public Use
  Company Number: FR-ACTELION-A-CH2010-40029

PATIENT
  Sex: Male
  Weight: 15 kg

DRUGS (1)
  1. ZAVESCA [Suspect]
     Indication: NIEMANN-PICK DISEASE
     Dosage: 50 MG, BID
     Route: 048
     Dates: start: 20090824, end: 20100815

REACTIONS (5)
  - ASPHYXIA [None]
  - CONDITION AGGRAVATED [None]
  - HYPOXIA [None]
  - INTERSTITIAL LUNG DISEASE [None]
  - MECHANICAL VENTILATION [None]
